FAERS Safety Report 10080853 (Version 1)
Quarter: 2014Q2

REPORT INFORMATION
  Report Type: Report from Study
  Country: MX (occurrence: MX)
  Receive Date: 20140416
  Receipt Date: 20140416
  Transmission Date: 20141212
  Serious: Yes (Other)
  Sender: FDA-Public Use
  Company Number: PHHY2014MX045352

PATIENT
  Age: 68 Year
  Sex: Female

DRUGS (6)
  1. ZOMETA [Suspect]
     Indication: OSTEOPOROSIS
     Dosage: 4 MG/5 ML, ANNUAL
     Route: 042
     Dates: start: 200901, end: 201201
  2. ZOMETA [Suspect]
     Indication: OFF LABEL USE
     Dosage: UNK UKN, UNK
     Dates: start: 2010
  3. ZOMETA [Suspect]
     Dosage: UNK UKN, UNK
     Dates: start: 2011
  4. ZOMETA [Suspect]
     Dosage: UNK UKN, UNK
     Dates: start: 2012
  5. PROLIA [Concomitant]
  6. CALCIUM [Concomitant]

REACTIONS (2)
  - Hypothyroidism [Unknown]
  - Drug ineffective [Unknown]
